FAERS Safety Report 11869256 (Version 1)
Quarter: 2015Q4

REPORT INFORMATION
  Report Type: Other
  Country: FR (occurrence: FR)
  Receive Date: 20151226
  Receipt Date: 20151226
  Transmission Date: 20160305
  Serious: Yes (Other)
  Sender: FDA-Public Use
  Company Number: FR-ASCEND THERAPEUTICS-1045893

PATIENT
  Age: 48 Year
  Sex: Female

DRUGS (4)
  1. ANDROCUR [Concomitant]
     Active Substance: CYPROTERONE ACETATE
     Route: 048
     Dates: start: 19940101
  2. ESTROGEL [Suspect]
     Active Substance: ESTRADIOL
     Route: 061
  3. ATENOLOL. [Concomitant]
     Active Substance: ATENOLOL
     Route: 048
  4. LORATEDINE [Concomitant]
     Route: 048

REACTIONS (1)
  - Meningioma [Recovering/Resolving]

NARRATIVE: CASE EVENT DATE: 20140914
